FAERS Safety Report 8559569-8 (Version None)
Quarter: 2012Q3

REPORT INFORMATION
  Report Type: 
  Country: None (occurrence: None)
  Receive Date: 20120727
  Receipt Date: 20120727
  Transmission Date: 20120928
  Serious: Yes (Life-Threatening, Hospitalization)
  Sender: FDA-Public Use
  Company Number: None

PATIENT
  Age: 46 Year
  Sex: Female
  Weight: 70.7611 kg

DRUGS (2)
  1. LEVOFLOXACIN [Suspect]
     Indication: EAR INFECTION
     Dosage: 500 MG 1X DAY PO
     Route: 048
     Dates: start: 20120224, end: 20120303
  2. LEVOFLOXACIN [Suspect]
     Indication: PNEUMONIA
     Dosage: 500 MG 1X DAY PO
     Route: 048
     Dates: start: 20120224, end: 20120303

REACTIONS (2)
  - JAUNDICE [None]
  - HOSPITALISATION [None]
